FAERS Safety Report 4304800-8 (Version None)
Quarter: 2004Q1

REPORT INFORMATION
  Report Type: 
  Country: None (occurrence: None)
  Receive Date: 20040226
  Receipt Date: 20031215
  Transmission Date: 20041129
  Serious: No
  Sender: FDA-Public Use
  Company Number: US-GLAXOSMITHKLINE-A0443171A

PATIENT
  Age: 77 Year
  Sex: Female

DRUGS (7)
  1. WELLBUTRIN [Suspect]
     Indication: DEPRESSION
     Dosage: 300MG PER DAY
     Route: 048
  2. TAMOXIFEN [Concomitant]
  3. DIOVAN [Concomitant]
  4. PREDNISONE [Concomitant]
  5. NEURONTIN [Concomitant]
  6. NEXIUM [Concomitant]
  7. MEGACE [Concomitant]

REACTIONS (3)
  - INSOMNIA [None]
  - RESTLESSNESS [None]
  - TREMOR [None]
